FAERS Safety Report 7183301-6 (Version None)
Quarter: 2010Q4

REPORT INFORMATION
  Report Type: 
  Country: None (occurrence: None)
  Receive Date: 20101222
  Receipt Date: 20100719
  Transmission Date: 20110411
  Serious: No
  Sender: FDA-Public Use
  Company Number: A0873302A

PATIENT
  Sex: Female

DRUGS (9)
  1. FLONASE [Suspect]
  2. NASONEX [Suspect]
  3. HYDROCORTISONE CYPIONATE [Suspect]
  4. OMNARIS [Concomitant]
  5. NORVASC [Concomitant]
  6. TOPROL-XL [Concomitant]
  7. XANAX [Concomitant]
  8. HALCION [Concomitant]
  9. PRILOSEC [Concomitant]

REACTIONS (1)
  - NASAL DISCOMFORT [None]
